FAERS Safety Report 10663534 (Version 2)
Quarter: 2014Q4

REPORT INFORMATION
  Report Type: Spontaneous
  Country: GB (occurrence: GB)
  Receive Date: 20141219
  Receipt Date: 20141219
  Transmission Date: 20150529
  Serious: Yes (Hospitalization, Other)
  Sender: FDA-Public Use
  Company Number: GB-AMGEN-GBRSP2014092002

PATIENT
  Age: 17 Year
  Sex: Female

DRUGS (2)
  1. ENBREL [Suspect]
     Active Substance: ETANERCEPT
     Indication: JUVENILE IDIOPATHIC ARTHRITIS
     Dosage: 50 MG, WEEKLY
     Route: 058
     Dates: start: 20141027
  2. LORATADINE. [Concomitant]
     Active Substance: LORATADINE
     Dosage: UNK

REACTIONS (12)
  - Injection site swelling [Not Recovered/Not Resolved]
  - Malaise [Recovered/Resolved]
  - Tonsillar hypertrophy [Recovered/Resolved]
  - Dizziness [Unknown]
  - Cellulitis [Unknown]
  - Nausea [Unknown]
  - Chest discomfort [Recovered/Resolved]
  - Injection site warmth [Recovered/Resolved]
  - Injection site reaction [Not Recovered/Not Resolved]
  - Infection [Recovered/Resolved]
  - Headache [Recovered/Resolved]
  - Injection site erythema [Not Recovered/Not Resolved]

NARRATIVE: CASE EVENT DATE: 2014
